FAERS Safety Report 6243997-X (Version None)
Quarter: 2009Q2

REPORT INFORMATION
  Report Type: 
  Country: None (occurrence: None)
  Receive Date: 20090623
  Receipt Date: 20090608
  Transmission Date: 20091009
  Serious: Yes (Hospitalization)
  Sender: FDA-Public Use
  Company Number: US-2009-00160

PATIENT
  Age: 80 Year
  Sex: Female

DRUGS (6)
  1. LEVETIRACETAM [Suspect]
     Dosage: MANUFACTURER NOT STATED; DOSE REDUCED FROM 2000MG/D TO 500MG/D AFTER EVENT
     Dates: start: 20020101
  2. VERAPAMIL [Concomitant]
  3. PROPRANOLOL HYDROCHLORIDE [Concomitant]
  4. METFORMIN HCL [Concomitant]
  5. OXAZEPAM [Concomitant]
  6. LEVODOPA/BENSERAZIDE [Concomitant]

REACTIONS (3)
  - DRUG LEVEL ABOVE THERAPEUTIC [None]
  - LEUKOENCEPHALOPATHY [None]
  - THERAPEUTIC AGENT TOXICITY [None]
